FAERS Safety Report 14553714 (Version 3)
Quarter: 2018Q2

REPORT INFORMATION
  Report Type: Report from Study
  Country: US (occurrence: US)
  Receive Date: 20180220
  Receipt Date: 20180419
  Transmission Date: 20180711
  Serious: Yes (Other)
  Sender: FDA-Public Use
  Company Number: US-GILEAD-2017-0302778

PATIENT
  Age: 68 Year
  Sex: Female

DRUGS (3)
  1. OXYGEN. [Concomitant]
     Active Substance: OXYGEN
  2. AMBRISENTAN [Suspect]
     Active Substance: AMBRISENTAN
     Indication: PULMONARY ARTERIAL HYPERTENSION
     Dosage: 5 MG, QD
     Route: 065
     Dates: start: 20160708
  3. SILDENAFIL CITRATE. [Concomitant]
     Active Substance: SILDENAFIL CITRATE

REACTIONS (10)
  - Weight decreased [Unknown]
  - Fall [Unknown]
  - Syncope [Not Recovered/Not Resolved]
  - Nasal congestion [Recovered/Resolved]
  - Malaise [Unknown]
  - Muscular weakness [Unknown]
  - Gastroenteritis viral [Unknown]
  - Head injury [Unknown]
  - Dizziness postural [Recovered/Resolved]
  - Oxygen saturation abnormal [Unknown]

NARRATIVE: CASE EVENT DATE: 2017
